FAERS Safety Report 10048131 (Version 2)
Quarter: 2014Q2

REPORT INFORMATION
  Report Type: Report from Study
  Country: IT (occurrence: IT)
  Receive Date: 20140331
  Receipt Date: 20140408
  Transmission Date: 20141212
  Serious: Yes (Hospitalization, Other)
  Sender: FDA-Public Use
  Company Number: IT-INCYTE CORPORATION-2014IN000814

PATIENT
  Sex: 0

DRUGS (4)
  1. INC424 [Suspect]
     Indication: MYELOFIBROSIS
     Dosage: 5 MG, BID
     Route: 048
     Dates: start: 20131008, end: 20140313
  2. INC424 [Suspect]
     Dosage: 5 MG, BID
     Route: 048
     Dates: start: 20140327
  3. INDERAL [Concomitant]
     Dosage: UNK
     Dates: start: 201307
  4. OMEPRAZEN                          /00661201/ [Concomitant]
     Dosage: UNK
     Dates: start: 201307

REACTIONS (1)
  - Jaundice [Recovered/Resolved]
